FAERS Safety Report 5541509-7 (Version None)
Quarter: 2007Q4

REPORT INFORMATION
  Report Type: 
  Country: None (occurrence: None)
  Receive Date: 20071210
  Receipt Date: 20071203
  Transmission Date: 20080405
  Serious: Yes (Hospitalization)
  Sender: FDA-Public Use
  Company Number: DE-BRISTOL-MYERS SQUIBB COMPANY-14005615

PATIENT
  Age: 60 Year
  Sex: Male

DRUGS (9)
  1. CETUXIMAB [Suspect]
     Indication: NON-SMALL CELL LUNG CANCER
     Dosage: CETUXIMAB 5 MG/ML
     Route: 042
     Dates: start: 20071130
  2. CARBOPLATIN [Suspect]
     Indication: NON-SMALL CELL LUNG CANCER
     Dosage: AUC
     Route: 042
     Dates: start: 20071130
  3. DOCETAXEL [Suspect]
     Indication: NON-SMALL CELL LUNG CANCER
     Route: 042
     Dates: start: 20071130
  4. ASPIRIN [Concomitant]
     Route: 048
  5. RAMIPRIL [Concomitant]
     Route: 048
  6. METOPROLOL SUCCINATE [Concomitant]
     Route: 048
  7. LIPIDIL [Concomitant]
     Route: 048
  8. PARACODIN BITARTRATE TAB [Concomitant]
     Route: 048
  9. NEXIUM [Concomitant]
     Route: 048

REACTIONS (1)
  - TACHYARRHYTHMIA [None]
